FAERS Safety Report 8379053-4 (Version None)
Quarter: 2012Q2

REPORT INFORMATION
  Report Type: 
  Country: None (occurrence: None)
  Receive Date: 20120522
  Receipt Date: 20120522
  Transmission Date: 20120825
  Serious: Yes (Other)
  Sender: FDA-Public Use
  Company Number: None

PATIENT
  Sex: Male

DRUGS (1)
  1. MYCOPHENOLATE MOFETIL [Suspect]
     Indication: SJOGREN'S SYNDROME
     Dosage: 1000MG BID PO
     Route: 048
     Dates: start: 20120223, end: 20120228

REACTIONS (4)
  - LETHARGY [None]
  - PULMONARY EMBOLISM [None]
  - THROMBOSIS [None]
  - MEMORY IMPAIRMENT [None]
